FAERS Safety Report 6702539-2 (Version None)
Quarter: 2010Q2

REPORT INFORMATION
  Report Type: 
  Country: None (occurrence: None)
  Receive Date: 20100429
  Receipt Date: 20100420
  Transmission Date: 20101027
  Serious: Yes (Other)
  Sender: FDA-Public Use
  Company Number: FR-PFIZER INC-2010049652

PATIENT
  Sex: Female

DRUGS (1)
  1. XALATAN [Suspect]

REACTIONS (2)
  - CATARACT OPERATION [None]
  - UVEITIS [None]
